FAERS Safety Report 25918762 (Version 1)
Quarter: 2025Q4

REPORT INFORMATION
  Report Type: Spontaneous
  Country: JP (occurrence: JP)
  Receive Date: 20251014
  Receipt Date: 20251014
  Transmission Date: 20260119
  Serious: Yes (Other)
  Sender: RANBAXY
  Company Number: JP-SUN PHARMACEUTICAL INDUSTRIES LTD-2025RR-531420

PATIENT
  Age: 27 Year
  Sex: Male

DRUGS (4)
  1. CAPECITABINE [Suspect]
     Active Substance: CAPECITABINE
     Indication: Gastrooesophageal cancer
     Dosage: 3600 MILLIGRAM, DAILY
     Route: 065
  2. OXALIPLATIN [Suspect]
     Active Substance: OXALIPLATIN
     Indication: Gastrooesophageal cancer
     Dosage: 130 MILLIGRAM/SQ. METER
     Route: 065
  3. ZOLBETUXIMAB [Suspect]
     Active Substance: ZOLBETUXIMAB
     Indication: Oesophageal adenocarcinoma
     Dosage: 800 MILLIGRAM/SQ. METER
     Route: 065
  4. ZOLBETUXIMAB [Suspect]
     Active Substance: ZOLBETUXIMAB
     Dosage: 600 MILLIGRAM/SQ. METER
     Route: 065

REACTIONS (4)
  - Gastritis [Recovered/Resolved]
  - Neuropathy peripheral [Recovered/Resolved]
  - Dysaesthesia [Recovered/Resolved]
  - Gastritis [Recovered/Resolved]
